FAERS Safety Report 9766201 (Version 4)
Quarter: 2014Q1

REPORT INFORMATION
  Report Type: Spontaneous
  Country: US (occurrence: US)
  Receive Date: 20131217
  Receipt Date: 20140310
  Transmission Date: 20141002
  Serious: Yes (Death, Hospitalization, Other)
  Sender: FDA-Public Use
  Company Number: US-JNJFOC-20120409763

PATIENT
  Sex: Female

DRUGS (22)
  1. DOXORUBICIN [Suspect]
     Indication: HER-2 POSITIVE BREAST CANCER
     Route: 042
  2. DOXORUBICIN [Suspect]
     Indication: HER-2 POSITIVE BREAST CANCER
     Route: 042
  3. CYCLOPHOSPHAMIDE [Suspect]
     Indication: HER-2 POSITIVE BREAST CANCER
     Route: 065
  4. PACLITAXEL [Suspect]
     Indication: HER-2 POSITIVE BREAST CANCER
     Dosage: TRIAL A
     Route: 065
  5. PACLITAXEL [Suspect]
     Indication: HER-2 POSITIVE BREAST CANCER
     Route: 065
  6. PACLITAXEL [Suspect]
     Indication: HER-2 POSITIVE BREAST CANCER
     Route: 065
  7. PACLITAXEL [Suspect]
     Indication: HER-2 POSITIVE BREAST CANCER
     Route: 065
  8. PACLITAXEL [Suspect]
     Indication: HER-2 POSITIVE BREAST CANCER
     Route: 065
  9. PACLITAXEL [Suspect]
     Indication: HER-2 POSITIVE BREAST CANCER
     Route: 065
  10. PACLITAXEL [Suspect]
     Indication: HER-2 POSITIVE BREAST CANCER
     Route: 065
  11. PACLITAXEL [Suspect]
     Indication: HER-2 POSITIVE BREAST CANCER
     Route: 065
  12. PACLITAXEL [Suspect]
     Indication: HER-2 POSITIVE BREAST CANCER
     Route: 065
  13. PACLITAXEL [Suspect]
     Indication: HER-2 POSITIVE BREAST CANCER
     Route: 065
  14. PACLITAXEL [Suspect]
     Indication: HER-2 POSITIVE BREAST CANCER
     Route: 065
  15. PACLITAXEL [Suspect]
     Indication: HER-2 POSITIVE BREAST CANCER
     Route: 065
  16. PACLITAXEL [Suspect]
     Indication: HER-2 POSITIVE BREAST CANCER
     Route: 065
  17. TRASTUZUMAB [Suspect]
     Indication: HER-2 POSITIVE BREAST CANCER
     Route: 065
  18. TRASTUZUMAB [Suspect]
     Indication: HER-2 POSITIVE BREAST CANCER
     Route: 065
  19. LAPATINIB [Suspect]
     Indication: HER-2 POSITIVE BREAST CANCER
     Route: 048
  20. ANTI EPIDERMAL GROWTH FACTOR RECEPTOR THERAPIES [Suspect]
     Indication: BREAST CANCER
     Route: 065
  21. PEGFILGRASTIM [Suspect]
     Indication: HER-2 POSITIVE BREAST CANCER
     Route: 065
  22. RADIOTHERAPY [Concomitant]
     Indication: HER-2 POSITIVE BREAST CANCER
     Route: 065

REACTIONS (31)
  - Anaemia [Unknown]
  - Ejection fraction decreased [Unknown]
  - Peripheral sensory neuropathy [Unknown]
  - Dyspnoea [Unknown]
  - Neutropenia [Unknown]
  - Nausea [Unknown]
  - Leukopenia [Unknown]
  - Fatigue [Unknown]
  - Rash [Unknown]
  - Thrombocytopenia [Unknown]
  - Cardiac failure congestive [Unknown]
  - Breast cancer metastatic [Fatal]
  - Pneumonia viral [Fatal]
  - Hepatitis B [Fatal]
  - Aspartate aminotransferase abnormal [Unknown]
  - Alanine aminotransferase abnormal [Unknown]
  - Dermatitis acneiform [Unknown]
  - Diarrhoea [Unknown]
  - Pyrexia [Unknown]
  - Pruritus [Unknown]
  - Vomiting [Unknown]
  - Dyspepsia [Unknown]
  - Mucosal inflammation [Unknown]
  - Constipation [Unknown]
  - Headache [Unknown]
  - Nail disorder [Unknown]
  - Arthralgia [Unknown]
  - Myalgia [Unknown]
  - Blood alkaline phosphatase abnormal [Unknown]
  - Blood bilirubin abnormal [Unknown]
  - Dizziness [Unknown]
